FAERS Safety Report 15791659 (Version 3)
Quarter: 2019Q1

REPORT INFORMATION
  Report Type: Report from Study
  Country: IT (occurrence: IT)
  Receive Date: 20190105
  Receipt Date: 20190330
  Transmission Date: 20190417
  Serious: Yes (Other)
  Sender: FDA-Public Use
  Company Number: IT-ACCORD-100497

PATIENT
  Age: 41 Year
  Sex: Male

DRUGS (7)
  1. AMOXICILLIN/CLAVULANIC ACID [Concomitant]
     Indication: ANTIBIOTIC PROPHYLAXIS
     Route: 048
  2. AMLODIPINE [Suspect]
     Active Substance: AMLODIPINE BESYLATE
     Dosage: ALSO RECEIVED 14 DOSAGE FORM FROM 09-APR-2018 TO 09-APR-2018
     Route: 048
  3. INVEGA [Concomitant]
     Active Substance: PALIPERIDONE
  4. FLUNOX [Suspect]
     Active Substance: FLURAZEPAM HYDROCHLORIDE
     Route: 048
     Dates: start: 20180409, end: 20180409
  5. RAMIPRIL. [Suspect]
     Active Substance: RAMIPRIL
     Dosage: ALSO RECEIVED 14 DOSAGE FORM FROM 09-APR-2018 TO 09-APR-2018
     Route: 048
  6. DOXAZOSIN [Suspect]
     Active Substance: DOXAZOSIN\DOXAZOSIN MESYLATE
     Dosage: ALSO RECEIVED 20 DOSAGE FORM FROM 09-APR-2018 TO 09-APR-2018
     Route: 048
  7. BISOPROLOL [Suspect]
     Active Substance: BISOPROLOL
     Route: 048

REACTIONS (4)
  - Hypertensive crisis [Recovered/Resolved]
  - Drug abuse [Unknown]
  - Hypotension [Unknown]
  - Cold sweat [Unknown]

NARRATIVE: CASE EVENT DATE: 20180409
